FAERS Safety Report 10436450 (Version 1)
Quarter: 2014Q3

REPORT INFORMATION
  Report Type: Report from Study
  Country: US (occurrence: US)
  Receive Date: 20140908
  Receipt Date: 20140908
  Transmission Date: 20150326
  Serious: Yes (Other)
  Sender: FDA-Public Use
  Company Number: US-PFIZER INC-2014245346

PATIENT
  Age: 66 Year
  Sex: Female
  Weight: 68.03 kg

DRUGS (1)
  1. CRIZOTINIB [Suspect]
     Active Substance: CRIZOTINIB
     Dosage: 250 MG, 2X/DAY
     Dates: start: 20120101, end: 20121201

REACTIONS (9)
  - Headache [Unknown]
  - Diarrhoea [Unknown]
  - Vomiting [Unknown]
  - Constipation [Unknown]
  - Dyspnoea [Unknown]
  - Visual impairment [Unknown]
  - Nausea [Unknown]
  - Decreased appetite [Unknown]
  - Cough [Unknown]
